FAERS Safety Report 10664135 (Version 1)
Quarter: 2014Q4

REPORT INFORMATION
  Report Type: Spontaneous
  Country: US (occurrence: None)
  Receive Date: 20141217
  Receipt Date: 20141217
  Transmission Date: 20150529
  Serious: Yes (Other)
  Sender: FDA-Public Use
  Company Number: 2014-20926

PATIENT
  Age: 74 Year
  Sex: Male

DRUGS (2)
  1. METFORMIN [Concomitant]
     Active Substance: METFORMIN HYDROCHLORIDE
  2. EYLEA [Suspect]
     Active Substance: AFLIBERCEPT
     Dosage: MONTHLY OD
     Route: 031
     Dates: start: 20140930, end: 20141201

REACTIONS (4)
  - Intraocular pressure decreased [None]
  - Streptococcal infection [None]
  - Endophthalmitis [None]
  - Visual impairment [None]

NARRATIVE: CASE EVENT DATE: 20141202
